FAERS Safety Report 9221943 (Version 2)
Quarter: 2013Q2

REPORT INFORMATION
  Report Type: Spontaneous
  Country: US (occurrence: US)
  Receive Date: 20130410
  Receipt Date: 20130430
  Transmission Date: 20140414
  Serious: No
  Sender: FDA-Public Use
  Company Number: US-PFIZER INC-2013108581

PATIENT
  Age: 58 Year
  Sex: Female
  Weight: 68.03 kg

DRUGS (5)
  1. SUTENT [Suspect]
     Indication: NEOPLASM MALIGNANT
     Dosage: 60 MG, 1X/DAY
     Route: 048
     Dates: start: 201301
  2. GLIPIZIDE [Concomitant]
     Indication: BLOOD GLUCOSE ABNORMAL
     Dosage: 10 MG, 1X/DAY
  3. LORATIDINE [Concomitant]
     Indication: HYPERSENSITIVITY
     Dosage: UNK
  4. METFORMIN [Concomitant]
     Indication: BLOOD GLUCOSE ABNORMAL
     Dosage: 850 MG, 1X/DAY
  5. PREDNISOLONE [Concomitant]
     Indication: HYPERSENSITIVITY
     Dosage: 10 MG, 1X/DAY

REACTIONS (3)
  - Blister [Recovering/Resolving]
  - Glossodynia [Unknown]
  - Off label use [Unknown]
